FAERS Safety Report 10101167 (Version 1)
Quarter: 2014Q2

REPORT INFORMATION
  Report Type: Spontaneous
  Country: US (occurrence: US)
  Receive Date: 20140424
  Receipt Date: 20140424
  Transmission Date: 20141212
  Serious: No
  Sender: FDA-Public Use
  Company Number: US-009507513-1404USA007547

PATIENT
  Sex: Female

DRUGS (1)
  1. SYLATRON [Suspect]
     Dosage: UNK

REACTIONS (2)
  - Exposure during pregnancy [Unknown]
  - No adverse event [Unknown]
